FAERS Safety Report 7801315-7 (Version None)
Quarter: 2011Q4

REPORT INFORMATION
  Report Type: 
  Country: None (occurrence: None)
  Receive Date: 20111006
  Receipt Date: 20111006
  Transmission Date: 20120403
  Serious: Yes (Hospitalization)
  Sender: FDA-Public Use
  Company Number: None

PATIENT
  Age: 88 Year
  Sex: Male
  Weight: 97.1 kg

DRUGS (9)
  1. VIT D [Concomitant]
  2. MAG OX [Concomitant]
  3. PLETAL [Suspect]
     Indication: ATRIAL FIBRILLATION
     Dosage: 100MG BID PO CHRONIC
     Route: 048
  4. LASIX [Concomitant]
  5. ASPIRIN [Suspect]
     Indication: DEEP VEIN THROMBOSIS
     Dosage: 81 MG DAILY PO CHRONIC
     Route: 048
  6. PERCOCET [Concomitant]
  7. LOVASTATIN [Concomitant]
  8. FLEXERIL [Concomitant]
  9. COUMADIN [Suspect]
     Indication: ATRIAL FIBRILLATION
     Dosage: 3MG DAILY PO CHRONIC
     Route: 048

REACTIONS (7)
  - HAEMATOMA [None]
  - PAIN IN EXTREMITY [None]
  - RETROPERITONEAL HAEMATOMA [None]
  - BACK PAIN [None]
  - INTERNATIONAL NORMALISED RATIO INCREASED [None]
  - DEEP VEIN THROMBOSIS [None]
  - UNRESPONSIVE TO STIMULI [None]
